FAERS Safety Report 7081700-4 (Version None)
Quarter: 2010Q4

REPORT INFORMATION
  Report Type: 
  Country: None (occurrence: None)
  Receive Date: 20101025
  Receipt Date: 20101013
  Transmission Date: 20110411
  Serious: Yes (Death, Hospitalization)
  Sender: FDA-Public Use
  Company Number: 107109

PATIENT
  Age: 57 Year
  Sex: Female

DRUGS (2)
  1. CYTARABINE [Suspect]
     Indication: ACUTE LYMPHOCYTIC LEUKAEMIA
     Dosage: 75 MG/M2; 500 MG/M2
  2. ETOPOSIDE [Suspect]
     Indication: ACUTE LYMPHOCYTIC LEUKAEMIA
     Dosage: 200 MG/M2,

REACTIONS (5)
  - BACTERIAL INFECTION [None]
  - FEBRILE NEUTROPENIA [None]
  - HEPATITIS ACUTE [None]
  - HEPATITIS B [None]
  - LEUKAEMIA RECURRENT [None]
